FAERS Safety Report 4755789-9 (Version None)
Quarter: 2005Q3

REPORT INFORMATION
  Report Type: 
  Country: None (occurrence: None)
  Receive Date: 20050830
  Receipt Date: 20050728
  Transmission Date: 20060218
  Serious: No
  Sender: FDA-Public Use
  Company Number: US-BRISTOL-MYERS SQUIBB COMPANY-13054960

PATIENT
  Sex: Female
  Weight: 71 kg

DRUGS (1)
  1. ABILIFY [Suspect]
     Indication: BIPOLAR DISORDER
     Route: 048
     Dates: start: 20030201

REACTIONS (6)
  - BRONCHITIS [None]
  - MOOD SWINGS [None]
  - OEDEMA [None]
  - PSYCHOTIC DISORDER [None]
  - STRESS [None]
  - WEIGHT INCREASED [None]
